FAERS Safety Report 4597601-7 (Version None)
Quarter: 2005Q1

REPORT INFORMATION
  Report Type: 
  Country: None (occurrence: None)
  Receive Date: 20050228
  Receipt Date: 20050228
  Transmission Date: 20050727
  Serious: Yes (Hospitalization)
  Sender: FDA-Public Use
  Company Number: None

PATIENT
  Sex: Female
  Weight: 70.3075 kg

DRUGS (2)
  1. PROZAC [Suspect]
     Indication: DEPRESSION
     Dosage: 1-2 X DAILY ORAL
     Route: 048
     Dates: start: 20001216, end: 20040722
  2. PROZAC [Suspect]
     Indication: OBSESSIVE-COMPULSIVE DISORDER
     Dosage: 1-2 X DAILY ORAL
     Route: 048
     Dates: start: 20001216, end: 20040722

REACTIONS (6)
  - ALCOHOLISM [None]
  - AMNESIA [None]
  - BIPOLAR DISORDER [None]
  - CONDITION AGGRAVATED [None]
  - DEPRESSION [None]
  - SUICIDE ATTEMPT [None]
